FAERS Safety Report 18462225 (Version 1)
Quarter: 2020Q4

REPORT INFORMATION
  Report Type: Spontaneous
  Country: US (occurrence: US)
  Receive Date: 20201103
  Receipt Date: 20201103
  Transmission Date: 20210114
  Serious: Yes (Hospitalization)
  Sender: FDA-Public Use
  Company Number: None

PATIENT
  Age: 69 Year
  Sex: Male

DRUGS (18)
  1. INSULIN ASPA FLEXPEN [Concomitant]
  2. FLUOXETINE [Concomitant]
     Active Substance: FLUOXETINE HYDROCHLORIDE
  3. SODIUM BICAR [Concomitant]
  4. BASAGLAR [Concomitant]
     Active Substance: INSULIN GLARGINE
  5. CYCLOBENZAPRINE. [Concomitant]
     Active Substance: CYCLOBENZAPRINE
  6. METOPROLOL. [Concomitant]
     Active Substance: METOPROLOL
  7. MYCOPHENOLIC [Suspect]
     Active Substance: MYCOPHENOLIC ACID
     Indication: RENAL TRANSPLANT
     Route: 048
     Dates: start: 20150120
  8. AMLODIPINE [Concomitant]
     Active Substance: AMLODIPINE BESYLATE
  9. CALCITRIOL. [Concomitant]
     Active Substance: CALCITRIOL
  10. LORAZEPAM. [Concomitant]
     Active Substance: LORAZEPAM
  11. PRALUENT [Concomitant]
     Active Substance: ALIROCUMAB
  12. ISOSORB MONO [Concomitant]
     Active Substance: ISOSORBIDE MONONITRATE
  13. TACROLIMUS. [Suspect]
     Active Substance: TACROLIMUS
     Indication: RENAL TRANSPLANT
     Route: 048
     Dates: start: 20150119
  14. ALLOPURINOL. [Concomitant]
     Active Substance: ALLOPURINOL
  15. HYDRALAZINE [Concomitant]
     Active Substance: HYDRALAZINE HYDROCHLORIDE
  16. RANEXA [Concomitant]
     Active Substance: RANOLAZINE
  17. BRILINTA [Concomitant]
     Active Substance: TICAGRELOR
  18. NOVOLOG [Concomitant]
     Active Substance: INSULIN ASPART

REACTIONS (1)
  - Chest pain [None]

NARRATIVE: CASE EVENT DATE: 20201102
